FAERS Safety Report 5699716-9 (Version None)
Quarter: 2008Q2

REPORT INFORMATION
  Report Type: 
  Country: None (occurrence: None)
  Receive Date: 20080410
  Receipt Date: 20080403
  Transmission Date: 20081010
  Serious: Yes (Other)
  Sender: FDA-Public Use
  Company Number: PHNU2008DE01263

PATIENT
  Sex: Male

DRUGS (11)
  1. RASILEZ [Suspect]
     Indication: HYPERTENSION
     Dosage: UNK, UNK
     Dates: start: 20071001, end: 20080201
  2. ACETYLSALICYLIC ACID SRT [Concomitant]
     Dosage: 1 DF, QD
  3. ALLOPURINOL [Concomitant]
     Dosage: 0.5 DF, QD
  4. ATENOLOL [Concomitant]
     Dosage: 1 DF, QD
  5. TROMCARDIN FORTE [Concomitant]
     Dosage: 1 DF, BID
  6. ENALAPRIL MALEATE [Concomitant]
     Dosage: 2.5 DF/D (1.5-0-1)
  7. TOREM [Concomitant]
     Dosage: 0.5 DF, QD
  8. CARMEN [Concomitant]
     Dosage: 1 DF, QD
  9. NOVALGIN /SWE/ [Concomitant]
     Dosage: UNK, PRN
  10. DOXAZOSIN [Concomitant]
  11. METAMIZOLE [Concomitant]

REACTIONS (8)
  - BIOPSY KIDNEY ABNORMAL [None]
  - GLOMERULONEPHRITIS MEMBRANOUS [None]
  - GLUCOSE TOLERANCE TEST ABNORMAL [None]
  - GLYCOSYLATED HAEMOGLOBIN INCREASED [None]
  - HAEMATURIA [None]
  - HYPERKALAEMIA [None]
  - METABOLIC SYNDROME [None]
  - PROTEINURIA [None]
